FAERS Safety Report 19242026 (Version 1)
Quarter: 2021Q2

REPORT INFORMATION
  Report Type: Report from Study
  Country: US (occurrence: US)
  Receive Date: 20210510
  Receipt Date: 20210510
  Transmission Date: 20210717
  Serious: Yes (Other)
  Sender: FDA-Public Use
  Company Number: US-EXELIXIS-CABO-20036091

PATIENT
  Age: 66 Year
  Sex: Male

DRUGS (2)
  1. CABOMETYX [Suspect]
     Active Substance: CABOZANTINIB S-MALATE
     Indication: RECTAL CANCER
     Dosage: 40 MG, QD
     Route: 048
     Dates: start: 20201219
  2. CABOMETYX [Suspect]
     Active Substance: CABOZANTINIB S-MALATE
     Indication: ANAL CANCER

REACTIONS (10)
  - Fatigue [Unknown]
  - White blood cell count decreased [Unknown]
  - Pyrexia [Unknown]
  - Unresponsive to stimuli [Unknown]
  - Stomatitis [Unknown]
  - Skin ulcer [Unknown]
  - Mouth ulceration [Unknown]
  - Blood pressure increased [Recovered/Resolved]
  - Off label use [Unknown]
  - Hepatic enzyme increased [Unknown]

NARRATIVE: CASE EVENT DATE: 20201219
